FAERS Safety Report 7517428-3 (Version None)
Quarter: 2011Q2

REPORT INFORMATION
  Report Type: 
  Country: None (occurrence: None)
  Receive Date: 20110601
  Receipt Date: 20110527
  Transmission Date: 20111010
  Serious: Yes (Other)
  Sender: FDA-Public Use
  Company Number: AU-PFIZER INC-2011100357

PATIENT
  Age: 77 Year
  Sex: Male
  Weight: 65 kg

DRUGS (2)
  1. PRISTIQ [Suspect]
     Indication: MAJOR DEPRESSION
     Dosage: 50 MG, 1X/DAY
     Route: 048
     Dates: start: 20100201
  2. CARTIA XT [Concomitant]
     Indication: PROPHYLAXIS
     Dosage: 100 MG, 1X/DAY
     Route: 048

REACTIONS (1)
  - RENAL IMPAIRMENT [None]
